FAERS Safety Report 4399634-2 (Version None)
Quarter: 2004Q3

REPORT INFORMATION
  Report Type: 
  Country: None (occurrence: None)
  Receive Date: 20040712
  Receipt Date: 20040624
  Transmission Date: 20050211
  Serious: Yes (Hospitalization)
  Sender: FDA-Public Use
  Company Number: 2004043990

PATIENT
  Age: 3 Year
  Sex: Male

DRUGS (1)
  1. SUDAFED S.A. [Suspect]
     Indication: ACCIDENTAL EXPOSURE
     Dosage: 90 ML ONCE, ORAL
     Route: 048
     Dates: start: 20040628, end: 20040628

REACTIONS (3)
  - ACCIDENTAL EXPOSURE [None]
  - DEPRESSED LEVEL OF CONSCIOUSNESS [None]
  - OVERDOSE [None]
